FAERS Safety Report 10211713 (Version 1)
Quarter: 2014Q2

REPORT INFORMATION
  Report Type: Spontaneous
  Country: IT (occurrence: None)
  Receive Date: 20140528
  Receipt Date: 20140528
  Transmission Date: 20141212
  Serious: Yes (Other)
  Sender: FDA-Public Use
  Company Number: 2014AP003138

PATIENT
  Age: 3 Year
  Sex: Female

DRUGS (8)
  1. TOPIRAMATE (TOPIRAMATE) [Suspect]
     Indication: PRODUCT USED FOR UNKNOWN INDICATION
  2. DIAZEPAM (DIAZEPAM) [Suspect]
     Indication: PRODUCT USED FOR UNKNOWN INDICATION
  3. PHENYTOIN (PHENYTOIN) [Suspect]
     Indication: PRODUCT USED FOR UNKNOWN INDICATION
     Route: 042
  4. MIDAZOLAM (MIDAZOLAM) [Suspect]
     Indication: PRODUCT USED FOR UNKNOWN INDICATION
  5. CARBAMAZEPINE (CARBAMAZEPINE) [Suspect]
     Indication: PRODUCT USED FOR UNKNOWN INDICATION
  6. VALPROATE SODIUM [Suspect]
     Indication: PRODUCT USED FOR UNKNOWN INDICATION
  7. CLONAZEPAM (CLONAZEPAM) (CLONAZEPAM) [Suspect]
     Indication: PRODUCT USED FOR UNKNOWN INDICATION
  8. CLOBAZAM (CLOBAZAM) [Suspect]
     Indication: PRODUCT USED FOR UNKNOWN INDICATION

REACTIONS (2)
  - Epilepsy [None]
  - Drug effect incomplete [None]
